FAERS Safety Report 9407278 (Version 1)
Quarter: 2013Q3

REPORT INFORMATION
  Report Type: Report from Study
  Country: US (occurrence: US)
  Receive Date: 20130718
  Receipt Date: 20130718
  Transmission Date: 20140515
  Serious: Yes (Hospitalization)
  Sender: FDA-Public Use
  Company Number: US-ROCHE-1249107

PATIENT
  Sex: Male

DRUGS (1)
  1. VALCYTE [Suspect]
     Indication: RENAL TRANSPLANT
     Dosage: FREQUENCY : ONCE EVERY OTHER DAY
     Route: 065

REACTIONS (2)
  - Cough [Unknown]
  - Cytomegalovirus infection [Unknown]
